FAERS Safety Report 5220206-1 (Version None)
Quarter: 2007Q1

REPORT INFORMATION
  Report Type: 
  Country: None (occurrence: None)
  Receive Date: 20061201
  Receipt Date: 20060505
  Transmission Date: 20070707
  Serious: Yes (Hospitalization)
  Sender: FDA-Public Use
  Company Number: PHEH2006US05947

PATIENT
  Age: 36 Year
  Sex: Female

DRUGS (1)
  1. LAMISIL [Suspect]
     Indication: NAIL TINEA
     Dosage: 250 MG, QD, ORAL
     Route: 048
     Dates: start: 20060414, end: 20060428

REACTIONS (6)
  - COUGH [None]
  - PRURITUS [None]
  - RASH [None]
  - STRIDOR [None]
  - URTICARIA [None]
  - WHEEZING [None]
